FAERS Safety Report 4298762-X (Version None)
Quarter: 2004Q1

REPORT INFORMATION
  Report Type: 
  Country: None (occurrence: None)
  Receive Date: 20040126
  Receipt Date: 20030911
  Transmission Date: 20041129
  Serious: No
  Sender: FDA-Public Use
  Company Number: USA030946980

PATIENT
  Sex: Female

DRUGS (7)
  1. STRATTERA [Suspect]
     Indication: ATTENTION DEFICIT/HYPERACTIVITY DISORDER
     Dosage: 40 MG/2 DAY
     Dates: start: 20030301
  2. KLONOPIN [Concomitant]
  3. TOPAMAX [Concomitant]
  4. PAXIL [Concomitant]
  5. HORMONE REPLACEMENT THERAPY [Concomitant]
  6. VIOXX [Concomitant]
  7. ATENOLOL [Concomitant]

REACTIONS (3)
  - DIZZINESS [None]
  - ORTHOSTATIC HYPOTENSION [None]
  - SOMNOLENCE [None]
